FAERS Safety Report 6310949-0 (Version None)
Quarter: 2009Q3

REPORT INFORMATION
  Report Type: 
  Country: None (occurrence: None)
  Receive Date: 20090817
  Receipt Date: 20090807
  Transmission Date: 20100115
  Serious: Yes (Hospitalization)
  Sender: FDA-Public Use
  Company Number: US-BIOGENIDEC-2009BI004913

PATIENT
  Age: 39 Year
  Sex: Female

DRUGS (1)
  1. TYSABRI [Suspect]
     Indication: MULTIPLE SCLEROSIS
     Route: 042
     Dates: start: 20090107, end: 20090501

REACTIONS (7)
  - ABDOMINAL DISCOMFORT [None]
  - CHEST PAIN [None]
  - FLUSHING [None]
  - HEART RATE DECREASED [None]
  - HYPERSENSITIVITY [None]
  - MALAISE [None]
  - MULTIPLE SCLEROSIS RELAPSE [None]
